FAERS Safety Report 16016826 (Version 1)
Quarter: 2019Q1

REPORT INFORMATION
  Report Type: Spontaneous
  Country: US (occurrence: US)
  Receive Date: 20190228
  Receipt Date: 20190228
  Transmission Date: 20190418
  Serious: Yes (Other)
  Sender: FDA-Public Use
  Company Number: US-PFIZER INC-2019077794

PATIENT
  Age: 22 Year
  Sex: Male
  Weight: 78.2 kg

DRUGS (2)
  1. COCAINE [Concomitant]
     Active Substance: COCAINE
     Dosage: UNK
  2. VIAGRA [Suspect]
     Active Substance: SILDENAFIL CITRATE
     Indication: SUBSTANCE USE
     Dosage: TOOK 16

REACTIONS (2)
  - Erection increased [Recovered/Resolved]
  - Intentional product misuse [Unknown]
